FAERS Safety Report 14025346 (Version 1)
Quarter: 2017Q3

REPORT INFORMATION
  Report Type: Spontaneous
  Country: IT (occurrence: IT)
  Receive Date: 20170929
  Receipt Date: 20170929
  Transmission Date: 20171128
  Serious: Yes (Hospitalization)
  Sender: FDA-Public Use
  Company Number: IT-ASTRAZENECA-2017SE98307

PATIENT
  Age: 18516 Day
  Sex: Female
  Weight: 50 kg

DRUGS (4)
  1. TOLEP [Concomitant]
     Active Substance: OXCARBAZEPINE
  2. RIVOTRIL [Concomitant]
     Active Substance: CLONAZEPAM
  3. FLURAZEPAM [Concomitant]
     Active Substance: FLURAZEPAM\FLURAZEPAM HYDROCHLORIDE
  4. SEROQUEL [Suspect]
     Active Substance: QUETIAPINE FUMARATE
     Indication: INTENTIONAL SELF-INJURY
     Route: 048
     Dates: start: 20170406, end: 20170406

REACTIONS (6)
  - Drug use disorder [Unknown]
  - Bradycardia [Unknown]
  - Altered state of consciousness [Unknown]
  - Sopor [Unknown]
  - Dysarthria [Unknown]
  - Intentional self-injury [Unknown]

NARRATIVE: CASE EVENT DATE: 20170406
